FAERS Safety Report 6511166-1 (Version None)
Quarter: 2009Q4

REPORT INFORMATION
  Report Type: 
  Country: None (occurrence: None)
  Receive Date: 20091222
  Receipt Date: 20091216
  Transmission Date: 20100525
  Serious: Yes (Other)
  Sender: FDA-Public Use
  Company Number: US-ELI_LILLY_AND_COMPANY-US200909001972

PATIENT
  Sex: Female
  Weight: 78.912 kg

DRUGS (13)
  1. CHK-1 INHIBITOR I (LY2603618) [Suspect]
     Indication: NEOPLASM
     Dosage: 70 MG/M2, OTHER
     Route: 042
     Dates: start: 20090421
  2. GEMCITABINE HCL [Suspect]
     Indication: NEOPLASM
     Dosage: 1000 MG/M2, WEEKLY (1/W)
     Route: 042
     Dates: start: 20090420
  3. XANAX [Concomitant]
     Indication: ANXIETY
     Dates: start: 20080101
  4. WELLBUTRIN [Concomitant]
     Indication: DEPRESSION
     Dates: start: 20080101
  5. ALENDRONATE SODIUM [Concomitant]
     Indication: OSTEOPOROSIS
     Dates: start: 20070101
  6. COUMADIN [Concomitant]
     Indication: PROPHYLAXIS
     Dosage: 1 MG, UNK
     Dates: start: 19990101
  7. LEVOTHYROXINE SODIUM [Concomitant]
     Indication: HYPOTHYROIDISM
     Dates: start: 20070101
  8. CALCIUM [Concomitant]
     Indication: SUPPLEMENTATION THERAPY
     Dates: start: 20080101
  9. ZOLPIDEM [Concomitant]
     Indication: INSOMNIA
     Dates: start: 20080101
  10. FLOVENT [Concomitant]
     Indication: ASTHMA
     Dates: start: 20050101
  11. ALBUTEROL [Concomitant]
     Indication: ASTHMA
     Dates: start: 20050101
  12. SEREVENT [Concomitant]
     Indication: ASTHMA
     Dates: start: 20050101
  13. PROAIR HFA [Concomitant]
     Indication: ASTHMA
     Dates: start: 20050101

REACTIONS (1)
  - NEPHROTIC SYNDROME [None]
